FAERS Safety Report 8494070-1 (Version None)
Quarter: 2012Q2

REPORT INFORMATION
  Report Type: 
  Country: None (occurrence: None)
  Receive Date: 20120629
  Receipt Date: 20120629
  Transmission Date: 20120825
  Serious: Yes (Life-Threatening, Hospitalization)
  Sender: FDA-Public Use
  Company Number: None

PATIENT
  Sex: Male
  Weight: 79 kg

DRUGS (6)
  1. XARELTO [Suspect]
     Indication: ATRIAL FIBRILLATION
     Dosage: 20MG QDAY PO
     Route: 048
     Dates: start: 20120411, end: 20120601
  2. CRESTOR [Concomitant]
  3. COREG [Concomitant]
  4. SLOW-MAG [Concomitant]
  5. FUROSEMIDE [Concomitant]
  6. ALTACE [Concomitant]

REACTIONS (5)
  - HYPONATRAEMIA [None]
  - SUBDURAL HAEMATOMA [None]
  - BRAIN MIDLINE SHIFT [None]
  - FALL [None]
  - COCCYDYNIA [None]
